FAERS Safety Report 21975402 (Version 1)
Quarter: 2023Q1

REPORT INFORMATION
  Report Type: Spontaneous
  Country: US (occurrence: US)
  Receive Date: 20230210
  Receipt Date: 20230210
  Transmission Date: 20230417
  Serious: No
  Sender: FDA-Public Use
  Company Number: US-BIOGEN-2023BI01184603

PATIENT
  Sex: Male

DRUGS (1)
  1. VUMERITY [Suspect]
     Active Substance: DIROXIMEL FUMARATE
     Indication: Multiple sclerosis
     Dosage: TAKING 2 PILLS INSTEAD OF 4 A DAY
     Route: 050
     Dates: start: 20201005

REACTIONS (2)
  - Intentional product misuse [Unknown]
  - Flushing [Unknown]
